FAERS Safety Report 5823327-5 (Version None)
Quarter: 2008Q3

REPORT INFORMATION
  Report Type: 
  Country: None (occurrence: None)
  Receive Date: 20080725
  Receipt Date: 20070618
  Transmission Date: 20090109
  Serious: No
  Sender: FDA-Public Use
  Company Number: US-AMGEN-KDL215308

PATIENT
  Sex: Female
  Weight: 84 kg

DRUGS (5)
  1. PROCRIT [Suspect]
     Indication: RENAL FAILURE CHRONIC
     Route: 058
     Dates: start: 20061101
  2. MYCOPHENOLATE MOFETIL [Suspect]
  3. IMMUNOSUPPRESSANTS [Concomitant]
     Dates: start: 20061001
  4. CORTICOSTEROIDS [Concomitant]
     Dates: start: 20061001
  5. UNSPECIFIED MEDICATION [Concomitant]
     Dates: start: 20061001

REACTIONS (1)
  - HAEMOGLOBIN DECREASED [None]
